FAERS Safety Report 5816045-0 (Version None)
Quarter: 2008Q3

REPORT INFORMATION
  Report Type: 
  Country: None (occurrence: None)
  Receive Date: 20080721
  Receipt Date: 20080710
  Transmission Date: 20090109
  Serious: Yes (Hospitalization)
  Sender: FDA-Public Use
  Company Number: BE-ELI_LILLY_AND_COMPANY-BE200806005216

PATIENT
  Sex: Female

DRUGS (6)
  1. FORTEO [Suspect]
     Indication: OSTEOPOROSIS
     Dosage: UNK, UNKNOWN
     Route: 065
     Dates: start: 20070724
  2. VENTOLIN                                /SCH/ [Concomitant]
     Dosage: UNK, UNKNOWN
     Route: 065
  3. LOMUDAL [Concomitant]
     Dosage: UNK, UNKNOWN
     Route: 065
  4. DUOVENT [Concomitant]
     Dosage: UNK, UNKNOWN
     Route: 065
  5. MEDROL [Concomitant]
     Dosage: UNK, UNKNOWN
     Route: 065
  6. TEMESTA [Concomitant]
     Dosage: UNK, UNKNOWN
     Route: 065

REACTIONS (1)
  - ASTHMA [None]
